FAERS Safety Report 4319438-6 (Version None)
Quarter: 2004Q1

REPORT INFORMATION
  Report Type: 
  Country: None (occurrence: None)
  Receive Date: 20040318
  Receipt Date: 20040318
  Transmission Date: 20041129
  Serious: Yes (Hospitalization)
  Sender: FDA-Public Use
  Company Number: None

PATIENT
  Age: 30 Year
  Sex: Female
  Weight: 85.2762 kg

DRUGS (12)
  1. ITRACONAZOLE [Suspect]
     Indication: BLOOD CULTURE POSITIVE
     Dosage: 200 MG DAILY ORAL
     Route: 048
     Dates: start: 20040127, end: 20040130
  2. ITRACONAZOLE [Suspect]
     Indication: CANDIDIASIS
     Dosage: 200 MG DAILY ORAL
     Route: 048
     Dates: start: 20040127, end: 20040130
  3. ACETAMINOPHEN [Concomitant]
  4. ASPIRIN [Concomitant]
  5. COLESTIPOL [Concomitant]
  6. LORTAB [Concomitant]
  7. INSULIN [Concomitant]
  8. KEPPRA [Concomitant]
  9. METOCLOPRAMIDE [Concomitant]
  10. ZOFRAN [Concomitant]
  11. K-DUR 10 [Concomitant]
  12. SYNTHROID [Concomitant]

REACTIONS (4)
  - ELECTROCARDIOGRAM QT PROLONGED [None]
  - TORSADE DE POINTES [None]
  - VENTRICULAR FIBRILLATION [None]
  - VENTRICULAR TACHYCARDIA [None]
